FAERS Safety Report 20718512 (Version 4)
Quarter: 2022Q4

REPORT INFORMATION
  Report Type: Report from Study
  Country: NL (occurrence: NL)
  Receive Date: 20220418
  Receipt Date: 20221013
  Transmission Date: 20230113
  Serious: Yes (Hospitalization)
  Sender: FDA-Public Use
  Company Number: NL-ROCHE-3074804

PATIENT
  Age: 67 Year
  Sex: Female

DRUGS (3)
  1. BEVACIZUMAB [Suspect]
     Active Substance: BEVACIZUMAB
     Indication: Colorectal cancer metastatic
     Dosage: DATE OF LAST DOSE: 23/FEB/2022
     Route: 042
     Dates: start: 20220204, end: 20220223
  2. CAPECITABINE [Suspect]
     Active Substance: CAPECITABINE
     Indication: Colorectal cancer metastatic
     Dosage: 4000 MG/M2, TWICE A DAY; DATE OF LAST DOSE: 23/FEB/2022
     Route: 048
     Dates: start: 20220204, end: 20220223
  3. OXALIPLATIN [Suspect]
     Active Substance: OXALIPLATIN
     Indication: Colorectal cancer metastatic
     Dosage: DATE OF LAST DOSE: 23/FEB/2022
     Route: 042
     Dates: start: 20220204, end: 20220223

REACTIONS (2)
  - Arteriospasm coronary [Unknown]
  - Pleural effusion [Recovered/Resolved]

NARRATIVE: CASE EVENT DATE: 20220223
